FAERS Safety Report 8309588-1 (Version None)
Quarter: 2012Q2

REPORT INFORMATION
  Report Type: 
  Country: None (occurrence: None)
  Receive Date: 20120419
  Receipt Date: 20120227
  Transmission Date: 20120825
  Serious: Yes (Hospitalization)
  Sender: FDA-Public Use
  Company Number: QR60295-02

PATIENT
  Age: 53 Year
  Sex: Female
  Weight: 49.8957 kg

DRUGS (8)
  1. IMMUNE GLOBULIN INTRAVENOUS (HUMAN) [Suspect]
     Indication: IMMUNODEFICIENCY
     Dosage: IV 25GRMS EVERY 3 WEEKS
     Route: 042
  2. ACETAMINOPHEN [Concomitant]
  3. TRAMADOL HCL [Concomitant]
  4. URSODIOL [Concomitant]
  5. FLUTICASONE PROPRIONATE INHALER [Concomitant]
  6. PANTOPRAZOLE [Concomitant]
  7. RAMIPRIL [Concomitant]
  8. PHENOXYMETHYLPENICILLIN [Concomitant]

REACTIONS (1)
  - PULMONARY EMBOLISM [None]
